FAERS Safety Report 4557308-9 (Version None)
Quarter: 2005Q1

REPORT INFORMATION
  Report Type: 
  Country: None (occurrence: None)
  Receive Date: 20050118
  Receipt Date: 20050107
  Transmission Date: 20050727
  Serious: Yes (Hospitalization, Other)
  Sender: FDA-Public Use
  Company Number: 200416386BCC

PATIENT
  Age: 66 Year
  Sex: Female
  Weight: 58.9676 kg

DRUGS (3)
  1. ALEVE (CAPLET) [Suspect]
     Indication: PAIN
     Dosage: 220 MG, PRN, ORAL
     Route: 048
     Dates: start: 20041201
  2. NORVASC [Concomitant]
  3. LOTREL [Concomitant]

REACTIONS (5)
  - DIALYSIS [None]
  - FULL BLOOD COUNT DECREASED [None]
  - RASH [None]
  - RENAL DISORDER [None]
  - SWELLING FACE [None]
